FAERS Safety Report 5778589-X (Version None)
Quarter: 2008Q2

REPORT INFORMATION
  Report Type: 
  Country: None (occurrence: None)
  Receive Date: 20080618
  Receipt Date: 20080618
  Transmission Date: 20081010
  Serious: No
  Sender: FDA-Public Use
  Company Number: None

PATIENT
  Age: 61 Year
  Sex: Male
  Weight: 90.7194 kg

DRUGS (3)
  1. NIASPAN [Suspect]
     Indication: HYPERCHOLESTEROLAEMIA
     Dates: start: 20050101, end: 20080617
  2. VYTORIN [Concomitant]
  3. ASPIRIN [Concomitant]

REACTIONS (2)
  - FLUSHING [None]
  - PRURITUS [None]
